FAERS Safety Report 26202986 (Version 1)
Quarter: 2025Q4

REPORT INFORMATION
  Report Type: Spontaneous
  Country: CA (occurrence: CA)
  Receive Date: 20251226
  Receipt Date: 20251226
  Transmission Date: 20260118
  Serious: Yes (Death, Life-Threatening, Hospitalization, Disabling, Congenital Anomaly, Other)
  Sender: SANDOZ
  Company Number: CA-HALEON-2279909

PATIENT
  Age: 43 Year
  Sex: Female
  Weight: 70 kg

DRUGS (83)
  1. ERELZI [Suspect]
     Active Substance: ETANERCEPT-SZZS
     Indication: Rheumatoid arthritis
     Dosage: 50 MG, QW
  2. ERELZI [Suspect]
     Active Substance: ETANERCEPT-SZZS
     Dosage: UNK
  3. ERELZI [Suspect]
     Active Substance: ETANERCEPT-SZZS
     Dosage: UNK
  4. ERELZI [Suspect]
     Active Substance: ETANERCEPT-SZZS
     Dosage: 50 MG
  5. ERELZI [Suspect]
     Active Substance: ETANERCEPT-SZZS
     Dosage: 50 MG
  6. HYRIMOZ [Suspect]
     Active Substance: ADALIMUMAB-ADAZ
     Indication: Rheumatoid arthritis
     Dosage: 20 MG(DOSE FORM: SOLUTION FOR INJECTION)
  7. HYRIMOZ [Suspect]
     Active Substance: ADALIMUMAB-ADAZ
     Indication: Psoriatic arthropathy
     Dosage: 3011.2 MG(DOSE FORM: SOLUTION FOR  INJECTION)
  8. HYRIMOZ [Suspect]
     Active Substance: ADALIMUMAB-ADAZ
     Dosage: 40 MG(DOSE FORM: SOLUTION FOR INJECTION)
  9. HYRIMOZ [Suspect]
     Active Substance: ADALIMUMAB-ADAZ
     Dosage: UNK(DOSE FORM: SOLUTION FOR INJECTION)
  10. HYRIMOZ [Suspect]
     Active Substance: ADALIMUMAB-ADAZ
     Dosage: 40 MG(DOSE FORM: SOLUTION FOR INJECTION)
  11. HYRIMOZ [Suspect]
     Active Substance: ADALIMUMAB-ADAZ
     Dosage: UNK(DOSE FORM: SOLUTION FOR INJECTION)
  12. OXYCODONE [Suspect]
     Active Substance: OXYCODONE
     Indication: Product used for unknown indication
     Dosage: 6 MG, QD(PATIENT ROA: UNKNOWN0
  13. OXYCODONE [Suspect]
     Active Substance: OXYCODONE
     Dosage: UNK(PATIENT ROA: INTRAVENOUS (NOT  OTHERWISE SPECIFIED))
  14. OXYCODONE [Suspect]
     Active Substance: OXYCODONE
     Dosage: UNK
  15. ALENDRONATE SODIUM [Suspect]
     Active Substance: ALENDRONATE SODIUM
     Indication: Rheumatoid arthritis
     Dosage: UNK
  16. ALENDRONATE SODIUM [Suspect]
     Active Substance: ALENDRONATE SODIUM
     Dosage: 20 MG
  17. ALENDRONATE SODIUM [Suspect]
     Active Substance: ALENDRONATE SODIUM
     Dosage: 30 MG
  18. ALENDRONATE SODIUM [Suspect]
     Active Substance: ALENDRONATE SODIUM
     Dosage: UNK
  19. ALENDRONATE SODIUM [Suspect]
     Active Substance: ALENDRONATE SODIUM
     Dosage: UNK
  20. ALENDRONATE SODIUM [Suspect]
     Active Substance: ALENDRONATE SODIUM
     Dosage: 2000 MG, QD
  21. ALENDRONATE SODIUM [Suspect]
     Active Substance: ALENDRONATE SODIUM
     Dosage: 20 MG
  22. ALENDRONATE SODIUM [Suspect]
     Active Substance: ALENDRONATE SODIUM
     Dosage: 40 MG
  23. ALENDRONATE SODIUM [Suspect]
     Active Substance: ALENDRONATE SODIUM
     Dosage: UNK
  24. DICLOFENAC [Suspect]
     Active Substance: DICLOFENAC
     Indication: Rheumatoid arthritis
     Dosage: UNK
  25. LEFLUNOMIDE [Suspect]
     Active Substance: LEFLUNOMIDE
     Indication: Rheumatoid arthritis
     Dosage: 20 MG
  26. LEFLUNOMIDE [Suspect]
     Active Substance: LEFLUNOMIDE
     Dosage: UNK
  27. LEFLUNOMIDE [Suspect]
     Active Substance: LEFLUNOMIDE
     Dosage: 20 MG, QD
  28. LEFLUNOMIDE [Suspect]
     Active Substance: LEFLUNOMIDE
     Dosage: 1 DF
  29. LEFLUNOMIDE [Suspect]
     Active Substance: LEFLUNOMIDE
     Dosage: 10 DF, QD
  30. LEFLUNOMIDE [Suspect]
     Active Substance: LEFLUNOMIDE
     Dosage: 20 MG
  31. RITUXIMAB [Suspect]
     Active Substance: RITUXIMAB
     Indication: Rheumatoid arthritis
     Dosage: 265 MG(PATIENT ROA: INTRAVENOUS (NOT  OTHERWISE SPECIFIED))
  32. RITUXIMAB [Suspect]
     Active Substance: RITUXIMAB
     Dosage: UNK(DOSE FORM: UNKNOWNPATIENT ROA:  INTRAVENOUS (NOT OTHERWISE SPECIFIED)
  33. RITUXIMAB [Suspect]
     Active Substance: RITUXIMAB
     Dosage: UNK(DOSE FORM: UNKNOWNPATIENT ROA:  INTRAVENOUS (NOT OTHERWISE SPECIFIED)
  34. RITUXIMAB [Suspect]
     Active Substance: RITUXIMAB
     Dosage: UNK
  35. RITUXIMAB [Suspect]
     Active Substance: RITUXIMAB
     Dosage: UNK
  36. RITUXIMAB [Suspect]
     Active Substance: RITUXIMAB
     Dosage: UNK
  37. RITUXIMAB [Suspect]
     Active Substance: RITUXIMAB
     Dosage: UNK
  38. RITUXIMAB [Suspect]
     Active Substance: RITUXIMAB
     Dosage: 365 MG(DOSE FORM: UNKNOWNPATIENT  ROA: UNKNOWN)
  39. RITUXIMAB [Suspect]
     Active Substance: RITUXIMAB
     Dosage: UNK(DOSE FORM: UNKNOWNPATIENT ROA:  INTRAVENOUS (NOT OTHERWISE SPECIFIED))
  40. QUETIAPINE FUMARATE [Suspect]
     Active Substance: QUETIAPINE FUMARATE
     Indication: Product used for unknown indication
     Dosage: UNK
  41. QUETIAPINE FUMARATE [Suspect]
     Active Substance: QUETIAPINE FUMARATE
     Dosage: UNK
  42. MYCOPHENOLATE MOFETIL [Suspect]
     Active Substance: MYCOPHENOLATE MOFETIL
     Indication: Rheumatoid arthritis
     Dosage: 20 MG
  43. MYCOPHENOLATE MOFETIL [Suspect]
     Active Substance: MYCOPHENOLATE MOFETIL
     Dosage: UNK
  44. ERENUMAB [Suspect]
     Active Substance: ERENUMAB
     Indication: Migraine
     Dosage: UNK
  45. ERENUMAB [Suspect]
     Active Substance: ERENUMAB
     Dosage: UNK
  46. DICLOFENAC [Suspect]
     Active Substance: DICLOFENAC
     Indication: Rheumatoid arthritis
     Dosage: UNK
  47. DICLOFENAC [Suspect]
     Active Substance: DICLOFENAC
     Dosage: 50 MG
  48. DICLOFENAC [Suspect]
     Active Substance: DICLOFENAC
     Dosage: 50 MG
  49. DICLOFENAC [Suspect]
     Active Substance: DICLOFENAC
     Dosage: UNK
  50. DICLOFENAC [Suspect]
     Active Substance: DICLOFENAC
     Dosage: 50 MG
  51. DICLOFENAC [Suspect]
     Active Substance: DICLOFENAC
     Dosage: 50 MG
  52. DICLOFENAC [Suspect]
     Active Substance: DICLOFENAC
     Dosage: UNK
  53. DICLOFENAC [Suspect]
     Active Substance: DICLOFENAC
     Dosage: UNK
  54. COSENTYX [Suspect]
     Active Substance: SECUKINUMAB
     Indication: Psoriatic arthropathy
     Dosage: UNK
  55. COSENTYX [Suspect]
     Active Substance: SECUKINUMAB
     Indication: Rheumatoid arthritis
     Dosage: UNK
  56. COSENTYX [Suspect]
     Active Substance: SECUKINUMAB
     Dosage: UNK
  57. COSENTYX [Suspect]
     Active Substance: SECUKINUMAB
     Dosage: UNK
  58. VOLTAREN [Suspect]
     Active Substance: DICLOFENAC SODIUM
     Indication: Rheumatoid arthritis
     Dosage: UNK
  59. VOLTAREN [Suspect]
     Active Substance: DICLOFENAC SODIUM
     Dosage: UNK
  60. VOLTAREN [Suspect]
     Active Substance: DICLOFENAC SODIUM
     Dosage: 50 MG
  61. VOLTAREN [Suspect]
     Active Substance: DICLOFENAC SODIUM
     Dosage: 500 MG, QD(EXPRESS,DOSE FORM:  UNKNOWNPATIENT ROA: UNKNOWN)
  62. VOLTAREN [Suspect]
     Active Substance: DICLOFENAC SODIUM
     Dosage: 50 G(DOSE FORM: UNKNOWNPATIENT ROA:  UNKNOWN)
  63. VOLTAREN [Suspect]
     Active Substance: DICLOFENAC SODIUM
     Dosage: UNK
  64. VOLTAREN [Suspect]
     Active Substance: DICLOFENAC SODIUM
     Dosage: UNK
  65. VOLTAREN [Suspect]
     Active Substance: DICLOFENAC SODIUM
     Dosage: 50 G(DOSE FORM: UNKNOWNPATIENT ROA:  UNKNOWN)
  66. VOLTAREN [Suspect]
     Active Substance: DICLOFENAC SODIUM
     Dosage: 50 MG
  67. VOLTAREN [Suspect]
     Active Substance: DICLOFENAC SODIUM
     Dosage: 50 MG(DOSE FORM: UNKNOWNPATIENT ROA:  UNKNOWN
  68. VOLTAREN [Suspect]
     Active Substance: DICLOFENAC SODIUM
     Dosage: UNK
  69. VOLTAREN [Suspect]
     Active Substance: DICLOFENAC SODIUM
     Dosage: UNK
  70. VOLTAREN [Suspect]
     Active Substance: DICLOFENAC SODIUM
     Dosage: UNK
  71. VOLTAREN [Suspect]
     Active Substance: DICLOFENAC SODIUM
     Dosage: 50 MG
  72. VOLTAREN [Suspect]
     Active Substance: DICLOFENAC SODIUM
     Dosage: 50 MG(DOSE FORM: UNKNOWNPATIENT ROA:  UNKNOWN
  73. VOLTAREN [Suspect]
     Active Substance: DICLOFENAC SODIUM
     Dosage: 50 MG(DOSE FORM: UNKNOWNPATIENT ROA:  UNKNOWN
  74. VOLTAREN [Suspect]
     Active Substance: DICLOFENAC SODIUM
     Dosage: 100 MG
  75. VOLTAREN [Suspect]
     Active Substance: DICLOFENAC SODIUM
     Dosage: 50 MG(DOSE FORM: UNKNOWNPATIENT ROA:  UNKNOWN
  76. VOLTAREN [Suspect]
     Active Substance: DICLOFENAC SODIUM
     Dosage: 50 MG
     Route: 047
  77. VOLTAROL [Suspect]
     Active Substance: DICLOFENAC SODIUM
     Indication: Rheumatoid arthritis
     Dosage: 50 MG(PATIENT ROA: UNKNOWN, ACTI-GO)
  78. VOLTAROL [Suspect]
     Active Substance: DICLOFENAC SODIUM
     Dosage: UNK
  79. VOLTAROL [Suspect]
     Active Substance: DICLOFENAC SODIUM
     Dosage: 50 MG(PATIENT ROA: UNKNOWN
  80. VOLTAROL [Suspect]
     Active Substance: DICLOFENAC SODIUM
     Dosage: UNK
  81. VOLTAROL [Suspect]
     Active Substance: DICLOFENAC SODIUM
     Dosage: UNK
  82. VOLTAROL [Suspect]
     Active Substance: DICLOFENAC SODIUM
     Dosage: UNK
  83. VOLTAROL [Suspect]
     Active Substance: DICLOFENAC SODIUM
     Dosage: 225 MG

REACTIONS (24)
  - Pulmonary fibrosis [Fatal]
  - Osteoarthritis [Fatal]
  - Osteoporosis [Fatal]
  - Pain [Fatal]
  - Pain in extremity [Fatal]
  - Pemphigus [Fatal]
  - Pericarditis [Fatal]
  - Peripheral swelling [Fatal]
  - Pneumonia [Fatal]
  - Pruritus [Fatal]
  - Pyrexia [Fatal]
  - Retinitis [Fatal]
  - Rheumatic fever [Fatal]
  - Oedema peripheral [Fatal]
  - Psoriasis [Fatal]
  - Psoriatic arthropathy [Fatal]
  - Rash [Fatal]
  - Red blood cell sedimentation rate increased [Fatal]
  - Intentional product use issue [Fatal]
  - Prescribed underdose [Fatal]
  - Prescribed overdose [Fatal]
  - Product use issue [Fatal]
  - Product use in unapproved indication [Fatal]
  - Off label use [Fatal]
